FAERS Safety Report 19813487 (Version 1)
Quarter: 2021Q3

REPORT INFORMATION
  Report Type: Spontaneous
  Country: US (occurrence: US)
  Receive Date: 20210909
  Receipt Date: 20210909
  Transmission Date: 20211014
  Serious: No
  Sender: FDA-Public Use
  Company Number: None

PATIENT
  Age: 64 Year
  Sex: Female
  Weight: 76 kg

DRUGS (12)
  1. FISH OIL 1200MG [Concomitant]
  2. TELMISARTAN 20MG [Concomitant]
  3. MULTIVITAMIN [Concomitant]
     Active Substance: VITAMINS
  4. FERROUS SULFATE 325MG [Concomitant]
     Active Substance: FERROUS SULFATE
  5. CRESTOR [Concomitant]
     Active Substance: ROSUVASTATIN CALCIUM
  6. GINKGO BILOBA 120MG [Concomitant]
  7. AFINITOR [Suspect]
     Active Substance: EVEROLIMUS
     Indication: BREAST CANCER
     Route: 048
     Dates: start: 20210616, end: 20210908
  8. ZETIA [Concomitant]
     Active Substance: EZETIMIBE
  9. EXEMESTANE 25MG [Concomitant]
     Active Substance: EXEMESTANE
  10. HYDROCHLOROTHIAZIDE 12.5MG [Concomitant]
     Active Substance: HYDROCHLOROTHIAZIDE
  11. CALCIUM + VITAMIN D 600MG?800IU [Concomitant]
  12. DEXAMETHASONE 0.5MG/5ML [Concomitant]

REACTIONS (1)
  - Disease progression [None]

NARRATIVE: CASE EVENT DATE: 20210908
